FAERS Safety Report 9450439 (Version 1)
Quarter: 2013Q3

REPORT INFORMATION
  Report Type: Spontaneous
  Country: GB (occurrence: None)
  Receive Date: 20130807
  Receipt Date: 20130807
  Transmission Date: 20140515
  Serious: Yes (Other)
  Sender: FDA-Public Use
  Company Number: 20130384

PATIENT
  Sex: Female

DRUGS (2)
  1. METHYLENE BLUE INJECTION, USP (0301-10) 1% [Suspect]
     Dosage: DOSE UNKNOWN UNKOWN
  2. CITALOPRAM [Suspect]
     Dosage: DOSE UNKNOWN UNKNOWN

REACTIONS (7)
  - Serotonin syndrome [None]
  - Angioedema [None]
  - Glossitis [None]
  - Dyspnoea [None]
  - Hypotension [None]
  - Electrocardiogram T wave inversion [None]
  - Tachycardia [None]
